FAERS Safety Report 14990232 (Version 1)
Quarter: 2018Q2

REPORT INFORMATION
  Report Type: Spontaneous
  Country: US (occurrence: US)
  Receive Date: 20180608
  Receipt Date: 20180608
  Transmission Date: 20180711
  Serious: No
  Sender: FDA-Public Use
  Company Number: US-ROCHE-2041570

PATIENT
  Sex: Female

DRUGS (1)
  1. ACTEMRA [Suspect]
     Active Substance: TOCILIZUMAB
     Indication: RHEUMATOID ARTHRITIS
     Route: 058
     Dates: start: 20161222

REACTIONS (6)
  - Ill-defined disorder [Unknown]
  - Vision blurred [Unknown]
  - Vitreous floaters [Unknown]
  - Decreased appetite [Unknown]
  - Intervertebral disc protrusion [Unknown]
  - Dissociative disorder [Unknown]
